FAERS Safety Report 12417674 (Version 1)
Quarter: 2016Q2

REPORT INFORMATION
  Report Type: Spontaneous
  Country: VE (occurrence: VE)
  Receive Date: 20160530
  Receipt Date: 20160530
  Transmission Date: 20160815
  Serious: Yes (Hospitalization)
  Sender: FDA-Public Use
  Company Number: PHHY2016VE072377

PATIENT
  Sex: Female

DRUGS (6)
  1. STALEVO [Suspect]
     Active Substance: CARBIDOPA\ENTACAPONE\LEVODOPA
     Indication: PARKINSON^S DISEASE
     Dosage: 50 MG, Q8H
     Route: 048
     Dates: start: 2006
  2. STALEVO [Suspect]
     Active Substance: CARBIDOPA\ENTACAPONE\LEVODOPA
     Dosage: 450 MG (100 MG STALEVO PRESENTATION INDICATED TO TAKE HALF TABLET), QD
     Route: 048
  3. EXELON PATCH [Suspect]
     Active Substance: RIVASTIGMINE
     Indication: MEMORY IMPAIRMENT
  4. STALEVO [Suspect]
     Active Substance: CARBIDOPA\ENTACAPONE\LEVODOPA
     Dosage: 150 MG, TID
     Route: 048
  5. EXELON PATCH [Suspect]
     Active Substance: RIVASTIGMINE
     Indication: DEMENTIA
     Dosage: 9.5 OT, QD
     Route: 062
     Dates: start: 2010
  6. ATORVASTATIN [Concomitant]
     Active Substance: ATORVASTATIN
     Indication: PRODUCT USED FOR UNKNOWN INDICATION
     Dosage: 40 MG, QD
     Route: 065

REACTIONS (9)
  - Tremor [Recovering/Resolving]
  - Asthenia [Recovering/Resolving]
  - Wrong technique in product usage process [Unknown]
  - Gait disturbance [Recovering/Resolving]
  - Lung infection [Recovering/Resolving]
  - Urinary tract infection [Recovering/Resolving]
  - General physical health deterioration [Recovering/Resolving]
  - Product use issue [Unknown]
  - Pneumonia [Recovering/Resolving]
